FAERS Safety Report 16746878 (Version 1)
Quarter: 2019Q3

REPORT INFORMATION
  Report Type: Report from Study
  Country: US (occurrence: US)
  Receive Date: 20190827
  Receipt Date: 20190827
  Transmission Date: 20191005
  Serious: Yes (Hospitalization)
  Sender: FDA-Public Use
  Company Number: US-BIOGEN-2019BI00774311

PATIENT
  Sex: Female

DRUGS (1)
  1. TECFIDERA [Suspect]
     Active Substance: DIMETHYL FUMARATE
     Indication: MULTIPLE SCLEROSIS
     Route: 048

REACTIONS (6)
  - Partial seizures [Unknown]
  - Multiple sclerosis [Unknown]
  - Sepsis [Unknown]
  - Subarachnoid haemorrhage [Unknown]
  - Influenza [Unknown]
  - Pyrexia [Unknown]
